FAERS Safety Report 24250646 (Version 3)
Quarter: 2024Q4

REPORT INFORMATION
  Report Type: Spontaneous
  Country: US (occurrence: US)
  Receive Date: 20240826
  Receipt Date: 20241009
  Transmission Date: 20250115
  Serious: No
  Sender: ELI LILLY AND CO
  Company Number: US-ELI_LILLY_AND_COMPANY-US202408012224

PATIENT
  Age: 55 Year
  Sex: Female

DRUGS (20)
  1. ZEPBOUND [Suspect]
     Active Substance: TIRZEPATIDE
     Indication: Glucose tolerance impaired
     Dosage: UNK UNK, UNKNOWN
     Route: 065
     Dates: start: 202404
  2. ZEPBOUND [Suspect]
     Active Substance: TIRZEPATIDE
     Indication: Glucose tolerance impaired
     Dosage: UNK UNK, UNKNOWN
     Route: 065
     Dates: start: 202404
  3. ZEPBOUND [Suspect]
     Active Substance: TIRZEPATIDE
     Indication: Glucose tolerance impaired
     Dosage: UNK UNK, UNKNOWN
     Route: 065
     Dates: start: 202404
  4. ZEPBOUND [Suspect]
     Active Substance: TIRZEPATIDE
     Indication: Glucose tolerance impaired
     Dosage: UNK UNK, UNKNOWN
     Route: 065
     Dates: start: 202404
  5. ZEPBOUND [Suspect]
     Active Substance: TIRZEPATIDE
     Indication: Blood cholesterol increased
     Dosage: 2.5 MG, UNKNOWN
     Route: 065
  6. ZEPBOUND [Suspect]
     Active Substance: TIRZEPATIDE
     Indication: Blood cholesterol increased
     Dosage: 2.5 MG, UNKNOWN
     Route: 065
  7. ZEPBOUND [Suspect]
     Active Substance: TIRZEPATIDE
     Indication: Blood cholesterol increased
     Dosage: 2.5 MG, UNKNOWN
     Route: 065
  8. ZEPBOUND [Suspect]
     Active Substance: TIRZEPATIDE
     Indication: Blood cholesterol increased
     Dosage: 2.5 MG, UNKNOWN
     Route: 065
  9. ZEPBOUND [Suspect]
     Active Substance: TIRZEPATIDE
     Indication: Weight control
     Dosage: 5 MG, UNKNOWN
     Route: 065
  10. ZEPBOUND [Suspect]
     Active Substance: TIRZEPATIDE
     Indication: Weight control
     Dosage: 5 MG, UNKNOWN
     Route: 065
  11. ZEPBOUND [Suspect]
     Active Substance: TIRZEPATIDE
     Indication: Weight control
     Dosage: 5 MG, UNKNOWN
     Route: 065
  12. ZEPBOUND [Suspect]
     Active Substance: TIRZEPATIDE
     Indication: Weight control
     Dosage: 5 MG, UNKNOWN
     Route: 065
  13. ZEPBOUND [Suspect]
     Active Substance: TIRZEPATIDE
     Indication: Cardiac disorder
     Dosage: 7.5 MG, UNKNOWN
     Route: 065
  14. ZEPBOUND [Suspect]
     Active Substance: TIRZEPATIDE
     Indication: Cardiac disorder
     Dosage: 7.5 MG, UNKNOWN
     Route: 065
  15. ZEPBOUND [Suspect]
     Active Substance: TIRZEPATIDE
     Indication: Cardiac disorder
     Dosage: 7.5 MG, UNKNOWN
     Route: 065
  16. ZEPBOUND [Suspect]
     Active Substance: TIRZEPATIDE
     Indication: Cardiac disorder
     Dosage: 7.5 MG, UNKNOWN
     Route: 065
  17. ZEPBOUND [Suspect]
     Active Substance: TIRZEPATIDE
     Indication: Hepatic steatosis
     Dosage: 10 MG, UNKNOWN
     Route: 065
     Dates: start: 202406
  18. ZEPBOUND [Suspect]
     Active Substance: TIRZEPATIDE
     Indication: Hepatic steatosis
     Dosage: 10 MG, UNKNOWN
     Route: 065
     Dates: start: 202406
  19. ZEPBOUND [Suspect]
     Active Substance: TIRZEPATIDE
     Indication: Hepatic steatosis
     Dosage: 10 MG, UNKNOWN
     Route: 065
     Dates: start: 202406
  20. ZEPBOUND [Suspect]
     Active Substance: TIRZEPATIDE
     Indication: Hepatic steatosis
     Dosage: 10 MG, UNKNOWN
     Route: 065
     Dates: start: 202406

REACTIONS (1)
  - Injection site infection [Not Recovered/Not Resolved]
